FAERS Safety Report 19413657 (Version 1)
Quarter: 2021Q2

REPORT INFORMATION
  Report Type: Spontaneous
  Country: GB (occurrence: GB)
  Receive Date: 20210615
  Receipt Date: 20210615
  Transmission Date: 20210717
  Serious: Yes (Other)
  Sender: FDA-Public Use
  Company Number: GB-B.I. PHARMACEUTICALS,INC./RIDGEFIELD-2021-BI-108077

PATIENT
  Age: 61 Year
  Sex: Female
  Weight: 50.8 kg

DRUGS (1)
  1. SIFROL [Suspect]
     Active Substance: PRAMIPEXOLE
     Indication: RESTLESS LEGS SYNDROME
     Dosage: 6 A DAY
     Route: 048
     Dates: start: 20180101, end: 20210523

REACTIONS (4)
  - Suspiciousness [Recovering/Resolving]
  - Obsessive-compulsive symptom [Recovering/Resolving]
  - Social avoidant behaviour [Recovering/Resolving]
  - Abnormal behaviour [Recovering/Resolving]

NARRATIVE: CASE EVENT DATE: 20190101
